FAERS Safety Report 8850373 (Version 1)
Quarter: 2012Q4

REPORT INFORMATION
  Report Type: Report from Study
  Country: DE (occurrence: DE)
  Receive Date: 20121019
  Receipt Date: 20121019
  Transmission Date: 20130627
  Serious: Yes (Life-Threatening, Hospitalization)
  Sender: FDA-Public Use
  Company Number: DE-BAXTER-2012BAX020104

PATIENT
  Age: 52 Year
  Sex: Male

DRUGS (12)
  1. ENDOXAN 1G [Suspect]
     Indication: NON-HODGKIN^S LYMPHOMA
     Route: 065
     Dates: start: 201112
  2. ENDOXAN 1G [Suspect]
     Route: 065
     Dates: start: 20120104
  3. UNSPECIFIED INGREDIENT [Suspect]
     Indication: NON-HODGKIN^S LYMPHOMA
     Route: 065
  4. HOLOXAN [Suspect]
     Indication: NON-HODGKIN^S LYMPHOMA
     Route: 065
  5. DOXORUBICIN [Suspect]
     Indication: NON-HODGKIN^S LYMPHOMA
     Route: 065
     Dates: start: 201112
  6. DOXORUBICIN [Suspect]
     Route: 065
     Dates: start: 20120104
  7. PREDNISOLONE [Suspect]
     Indication: NON-HODGKIN^S LYMPHOMA
     Route: 065
     Dates: start: 201112
  8. PREDNISOLONE [Suspect]
     Route: 065
     Dates: start: 20120104
  9. DEXAMETHASONE [Suspect]
     Indication: NON-HODGKIN^S LYMPHOMA
     Route: 065
  10. VINCRISTINE [Suspect]
     Indication: NON-HODGKIN^S LYMPHOMA
     Route: 065
     Dates: start: 201112
  11. VINCRISTINE [Suspect]
     Route: 065
     Dates: start: 20120104
  12. METHOTREXATE [Suspect]
     Indication: NON-HODGKIN^S LYMPHOMA
     Route: 065

REACTIONS (3)
  - Pyrexia [Recovered/Resolved]
  - Neutropenia [Unknown]
  - Pneumonia fungal [Not Recovered/Not Resolved]
